FAERS Safety Report 10450523 (Version 3)
Quarter: 2014Q4

REPORT INFORMATION
  Report Type: Report from Study
  Country: US (occurrence: US)
  Receive Date: 20140912
  Receipt Date: 20141024
  Transmission Date: 20150528
  Serious: Yes (Hospitalization, Other)
  Sender: FDA-Public Use
  Company Number: US-GLAXOSMITHKLINE-B1025352B

PATIENT
  Age: 74 Year
  Sex: Male
  Weight: 118 kg

DRUGS (29)
  1. FISH OIL [Concomitant]
     Active Substance: FISH OIL
     Indication: VITAMIN SUPPLEMENTATION
     Dosage: 1000 MG, OD
     Route: 048
     Dates: start: 2010
  2. HEPARIN [Concomitant]
     Active Substance: HEPARIN SODIUM
     Indication: MYOCARDIAL INFARCTION
     Dosage: 18 ML/HR, CINF
     Route: 042
     Dates: start: 20140730, end: 20140731
  3. OXYGEN. [Concomitant]
     Active Substance: OXYGEN
     Indication: CHEST PAIN
     Dosage: 3 L, UNK
     Route: 055
     Dates: start: 20140730, end: 20140731
  4. METOPROLOL [Concomitant]
     Active Substance: METOPROLOL
     Indication: HYPERTENSION
     Dosage: 75 MG, BID
     Route: 048
     Dates: start: 2007
  5. LIPITOR [Concomitant]
     Active Substance: ATORVASTATIN CALCIUM
     Indication: HYPERLIPIDAEMIA
     Dosage: 40 MG, OD
     Route: 048
     Dates: start: 2007
  6. LANTUS [Concomitant]
     Active Substance: INSULIN GLARGINE
     Indication: DIABETES MELLITUS
     Dosage: 100 U, PRN
     Route: 058
     Dates: start: 2006
  7. NASACORT [Concomitant]
     Active Substance: TRIAMCINOLONE ACETONIDE
     Indication: RHINITIS
     Dosage: 110 MCG, OD
     Route: 055
     Dates: start: 2010
  8. MUCINEX [Concomitant]
     Active Substance: GUAIFENESIN
     Indication: CHRONIC OBSTRUCTIVE PULMONARY DISEASE
     Dosage: 2400 MG, PRN
     Route: 048
     Dates: start: 20121128
  9. ISOSORBIDE MONONITRATE. [Concomitant]
     Active Substance: ISOSORBIDE MONONITRATE
     Indication: ANGINA PECTORIS
     Dosage: 120 MG, OD
     Route: 048
     Dates: start: 20140116
  10. NITROGLYCERIN. [Concomitant]
     Active Substance: NITROGLYCERIN
     Indication: CHEST PAIN
     Dosage: 0.4 MG, PRN
     Route: 060
     Dates: start: 2006
  11. FLUTICASONE FUROATE [Suspect]
     Active Substance: FLUTICASONE FUROATE
     Dates: start: 20140902
  12. CHILDREN^S ASPIRIN [Concomitant]
     Active Substance: ASPIRIN
     Indication: VITAMIN SUPPLEMENTATION
     Dosage: 81 MG, OD
     Route: 048
     Dates: start: 2005
  13. LANTUS [Concomitant]
     Active Substance: INSULIN GLARGINE
     Indication: DIABETES MELLITUS
     Dosage: 1 U, BID,  28-30
     Route: 058
     Dates: start: 2006
  14. NORMAL SALINE [Concomitant]
     Active Substance: SODIUM CHLORIDE
     Indication: RHINITIS
     Dosage: 0.65 %, OD
     Dates: start: 2010
  15. MORPHINE [Concomitant]
     Active Substance: MORPHINE
     Indication: CHEST PAIN
     Dosage: 2 MG, PRN
     Route: 042
     Dates: start: 20140730, end: 20140731
  16. ISOSORBIDE [Concomitant]
     Active Substance: ISOSORBIDE
     Indication: ANGINA PECTORIS
     Dosage: 20 MG, TID
     Route: 048
     Dates: start: 2007
  17. TUMS [Concomitant]
     Active Substance: CALCIUM CARBONATE
     Indication: GASTROOESOPHAGEAL REFLUX DISEASE
     Dosage: 500 MG, PRN
     Route: 048
     Dates: start: 2000
  18. ISOSORBIDE MONONITRATE. [Concomitant]
     Active Substance: ISOSORBIDE MONONITRATE
     Dosage: 60 MG, OD
     Route: 048
     Dates: start: 20140814
  19. ROCEPHIN [Concomitant]
     Active Substance: CEFTRIAXONE SODIUM
     Indication: SINUSITIS
     Dosage: 1 G, ONE
     Route: 042
     Dates: start: 20140830, end: 20140830
  20. FLUTICASONE FUROATE [Suspect]
     Active Substance: FLUTICASONE FUROATE
     Indication: CHRONIC OBSTRUCTIVE PULMONARY DISEASE
     Dates: start: 20140801, end: 20140830
  21. ALLOPURINOL. [Concomitant]
     Active Substance: ALLOPURINOL
     Indication: GOUT
     Dosage: 200 MG, OD
     Route: 048
     Dates: start: 20130427
  22. BETAMETHASONE DIPROPIONATE. [Concomitant]
     Active Substance: BETAMETHASONE DIPROPIONATE
     Indication: DERMATITIS ATOPIC
     Dosage: 0.05 %, PRN
     Route: 061
     Dates: start: 20121001
  23. PLAVIX [Concomitant]
     Active Substance: CLOPIDOGREL BISULFATE
     Indication: THROMBOSIS PROPHYLAXIS
     Dosage: 75 MG, OD
     Route: 048
     Dates: start: 20140813
  24. NITROGLYCERIN. [Concomitant]
     Active Substance: NITROGLYCERIN
     Indication: ANGINA PECTORIS
  25. HYDROCHLOROTHIAZIDE. [Concomitant]
     Active Substance: HYDROCHLOROTHIAZIDE
     Indication: HYPERTENSION
     Dosage: 25 MG, OD
     Route: 048
     Dates: start: 1998
  26. LIPITOR [Concomitant]
     Active Substance: ATORVASTATIN CALCIUM
     Indication: HYPERCHOLESTEROLAEMIA
     Dosage: 80 MG, HS
     Route: 048
     Dates: start: 201408
  27. NITROGLYCERINE [Concomitant]
     Active Substance: NITROGLYCERIN
     Indication: ANGINA PECTORIS
     Dosage: 1 PATCH, ONE
     Route: 061
     Dates: start: 20140830, end: 20140830
  28. COZAAR [Concomitant]
     Active Substance: LOSARTAN POTASSIUM
     Indication: HYPERTENSION
     Dosage: 100 MG, OD
     Route: 048
     Dates: start: 2007
  29. HUMALOG [Concomitant]
     Active Substance: INSULIN LISPRO
     Indication: DIABETES MELLITUS
     Dosage: 100 U, PRN
     Route: 058
     Dates: start: 2006

REACTIONS (1)
  - Cardiac failure congestive [Recovered/Resolved]

NARRATIVE: CASE EVENT DATE: 20140830
